FAERS Safety Report 13925109 (Version 3)
Quarter: 2017Q3

REPORT INFORMATION
  Report Type: Report from Study
  Country: US (occurrence: US)
  Receive Date: 20170831
  Receipt Date: 20170928
  Transmission Date: 20171127
  Serious: Yes (Hospitalization, Other)
  Sender: FDA-Public Use
  Company Number: US-JNJFOC-20170703371

PATIENT
  Age: 84 Year
  Sex: Male

DRUGS (24)
  1. IMBRUVICA [Suspect]
     Active Substance: IBRUTINIB
     Indication: CHRONIC LYMPHOCYTIC LEUKAEMIA
     Route: 048
     Dates: start: 20170620, end: 20170720
  2. FISH OIL W/TOCOPHEROL [Concomitant]
  3. CYANOCOBALAMIN. [Concomitant]
     Active Substance: CYANOCOBALAMIN
  4. TRIAMTERENE. [Concomitant]
     Active Substance: TRIAMTERENE
  5. TURMERIC [Concomitant]
     Active Substance: HERBALS\TURMERIC
  6. CENTRUM [Concomitant]
     Active Substance: VITAMINS
  7. OMEPRAZOLE. [Concomitant]
     Active Substance: OMEPRAZOLE
  8. MULTIVITAMINS [Concomitant]
     Active Substance: VITAMINS
  9. CENTRUM SILVER [Concomitant]
     Active Substance: MINERALS\VITAMINS
  10. GARLIC. [Concomitant]
     Active Substance: GARLIC
  11. FLUTICASONE PROPIONATE. [Concomitant]
     Active Substance: FLUTICASONE PROPIONATE
  12. VITAMIN D3 [Concomitant]
     Active Substance: CHOLECALCIFEROL
  13. VITAMIN B [Concomitant]
     Active Substance: VITAMIN B
  14. POTASSIUM CHLORIDE. [Concomitant]
     Active Substance: POTASSIUM CHLORIDE
  15. ASCORBIC ACID. [Concomitant]
     Active Substance: ASCORBIC ACID
  16. COLACE [Concomitant]
     Active Substance: DOCUSATE SODIUM
  17. FISH OIL [Concomitant]
     Active Substance: FISH OIL
  18. OXYBUTYNIN HYDROCHLORIDE [Concomitant]
     Active Substance: OXYBUTYNIN CHLORIDE
  19. TRIAMTERENE AND HYDROCHLOROTHIAZID [Concomitant]
     Active Substance: HYDROCHLOROTHIAZIDE\TRIAMTERENE
  20. HCTZ [Concomitant]
     Active Substance: HYDROCHLOROTHIAZIDE
  21. ALEVE [Concomitant]
     Active Substance: NAPROXEN SODIUM
  22. VITAMIN D [Concomitant]
     Active Substance: CHOLECALCIFEROL
  23. DETROL [Concomitant]
     Active Substance: TOLTERODINE TARTRATE
  24. MUPIROCIN. [Concomitant]
     Active Substance: MUPIROCIN

REACTIONS (11)
  - Pleural effusion [Recovering/Resolving]
  - Contusion [Not Recovered/Not Resolved]
  - Pneumonia [Unknown]
  - Dyspnoea [Unknown]
  - Jaw operation [Recovered/Resolved]
  - Cardiac arrest [Unknown]
  - Lymphadenopathy [Unknown]
  - Fall [Not Recovered/Not Resolved]
  - Fatigue [Unknown]
  - Skin discolouration [Not Recovered/Not Resolved]
  - Diarrhoea [Recovered/Resolved]

NARRATIVE: CASE EVENT DATE: 201706
